FAERS Safety Report 16358203 (Version 1)
Quarter: 2019Q2

REPORT INFORMATION
  Report Type: Spontaneous
  Country: US (occurrence: US)
  Receive Date: 20190527
  Receipt Date: 20190527
  Transmission Date: 20190711
  Serious: Yes (Other)
  Sender: FDA-Public Use
  Company Number: US-PFIZER INC-2019218973

PATIENT
  Age: 53 Year
  Sex: Female
  Weight: 73.3 kg

DRUGS (10)
  1. ADVIL LIQUI-GELS [Suspect]
     Active Substance: IBUPROFEN
     Indication: OTORRHOEA
  2. LEXAPRO [Concomitant]
     Active Substance: ESCITALOPRAM OXALATE
     Indication: ANXIETY
     Dosage: 20 MG, 1X/DAY
     Route: 048
     Dates: start: 2005
  3. ADVIL LIQUI-GELS [Suspect]
     Active Substance: IBUPROFEN
     Indication: MALAISE
     Dosage: 400 MG, AS NEEDED (2 CAPSULES TAKEN BY MOUTH ONCE DAILY AS NEEDED)
     Route: 048
  4. PRAVASTATIN. [Concomitant]
     Active Substance: PRAVASTATIN
     Indication: BLOOD CHOLESTEROL INCREASED
     Dosage: 10 MG, 1X/DAY (NIGHTLY)
     Route: 048
     Dates: start: 201811
  5. PREMARIN [Concomitant]
     Active Substance: ESTROGENS, CONJUGATED
     Indication: HYSTERECTOMY
     Dosage: 0.45 MG, 1X/DAY
     Route: 048
     Dates: start: 2007
  6. LISINOPRIL. [Concomitant]
     Active Substance: LISINOPRIL
     Indication: HYPERTENSION
     Dosage: 10 MG, 1X/DAY (AT NIGHT)
     Route: 048
  7. LEVOXYL [Concomitant]
     Active Substance: LEVOTHYROXINE SODIUM
     Indication: HYPOTHYROIDISM
     Dosage: 0.88 UG, 1X/DAY
     Route: 048
     Dates: start: 2007
  8. LIOTHYRONINE [Concomitant]
     Active Substance: LIOTHYRONINE
     Indication: HYPOTHYROIDISM
     Dosage: 5.5 MG, 1X/DAY
     Route: 048
     Dates: start: 2017
  9. ADVIL LIQUI-GELS [Suspect]
     Active Substance: IBUPROFEN
     Indication: COUGH
  10. ADVIL LIQUI-GELS [Suspect]
     Active Substance: IBUPROFEN
     Indication: EAR PAIN

REACTIONS (5)
  - Anaphylactic reaction [Recovering/Resolving]
  - Ocular hyperaemia [Recovering/Resolving]
  - Erythema [Recovering/Resolving]
  - Flushing [Recovering/Resolving]
  - Hypoaesthesia oral [Recovering/Resolving]

NARRATIVE: CASE EVENT DATE: 20190517
